FAERS Safety Report 4353486-5 (Version None)
Quarter: 2004Q2

REPORT INFORMATION
  Report Type: 
  Country: None (occurrence: None)
  Receive Date: 20040505
  Receipt Date: 20031105
  Transmission Date: 20050107
  Serious: Yes (Death, Other)
  Sender: FDA-Public Use
  Company Number: PHFR2003GB04274

PATIENT
  Age: 22 Year
  Sex: Female

DRUGS (4)
  1. CLOZARIL [Suspect]
     Indication: SCHIZOPHRENIA
     Dosage: 300 MG/DAY
     Route: 048
     Dates: start: 20030101
  2. CLOZARIL [Suspect]
     Dosage: 225 MG/DAY
     Route: 048
     Dates: start: 20020626
  3. CITALOPRAM [Concomitant]
     Dosage: 30 MG/DAY
     Route: 048
     Dates: start: 20030701
  4. HYOSCINE [Concomitant]
     Indication: SALIVARY HYPERSECRETION
     Dosage: 300UG/DAY
     Route: 048
     Dates: start: 20030301

REACTIONS (5)
  - DRUG TOXICITY [None]
  - HEPATIC STEATOSIS [None]
  - INFLUENZA LIKE ILLNESS [None]
  - OBESITY [None]
  - SPLENOMEGALY [None]
